FAERS Safety Report 10241352 (Version 1)
Quarter: 2014Q2

REPORT INFORMATION
  Report Type: Spontaneous
  Country: PT (occurrence: None)
  Receive Date: 20140613
  Receipt Date: 20140613
  Transmission Date: 20141212
  Serious: Yes (Death)
  Sender: FDA-Public Use
  Company Number: 2014-001725

PATIENT
  Age: 32 Year
  Sex: Male

DRUGS (10)
  1. SARAFEM [Suspect]
     Route: 048
  2. HALOPERIDOL [Suspect]
     Indication: SUICIDE ATTEMPT
     Route: 048
  3. BROMAZEPAM (BROMAZEPAM) [Suspect]
     Indication: SUICIDE ATTEMPT
     Route: 048
  4. DIAZEPAM (DIAZEPAM) [Suspect]
     Indication: SUICIDE ATTEMPT
     Route: 048
  5. LORAZEPAM (LORAZEPAM) [Suspect]
     Indication: SUICIDE ATTEMPT
     Route: 048
  6. OLANZAPINE (OLANZAPINE) [Suspect]
     Indication: SUICIDE ATTEMPT
     Route: 048
  7. PAROXETINE [Suspect]
     Indication: SUICIDE ATTEMPT
     Route: 048
  8. QUETIAPINE (QUETIAPINE) [Suspect]
     Indication: SUICIDE ATTEMPT
     Route: 048
  9. RISPERIDONE (RISPERIDONE) [Suspect]
     Indication: SUICIDE ATTEMPT
     Route: 048
  10. NORDIAZEPAM [Suspect]
     Indication: SUICIDE ATTEMPT
     Route: 048

REACTIONS (7)
  - Completed suicide [None]
  - Acute pulmonary oedema [None]
  - Pulmonary congestion [None]
  - Visceral congestion [None]
  - Intentional overdose [None]
  - Toxicity to various agents [None]
  - Mouth haemorrhage [None]
